FAERS Safety Report 6892524-2 (Version None)
Quarter: 2010Q3

REPORT INFORMATION
  Report Type: 
  Country: None (occurrence: None)
  Receive Date: 20100731
  Receipt Date: 20080630
  Transmission Date: 20110219
  Serious: No
  Sender: FDA-Public Use
  Company Number: US-PFIZER INC-2008055172

PATIENT
  Sex: Female
  Weight: 45.36 kg

DRUGS (3)
  1. NORVASC [Suspect]
     Indication: BLOOD PRESSURE
     Dates: start: 20070101
  2. CYCLOBENZAPRINE HYDROCHLORIDE [Concomitant]
  3. ATIVAN [Concomitant]

REACTIONS (4)
  - HEADACHE [None]
  - LACRIMATION INCREASED [None]
  - MUSCULOSKELETAL STIFFNESS [None]
  - VISION BLURRED [None]
